FAERS Safety Report 5860182-1 (Version None)
Quarter: 2008Q3

REPORT INFORMATION
  Report Type: 
  Country: None (occurrence: None)
  Receive Date: 20080827
  Receipt Date: 20080818
  Transmission Date: 20090109
  Serious: Yes (Death)
  Sender: FDA-Public Use
  Company Number: SE-PFIZER INC-2008069524

PATIENT
  Age: 63 Year
  Sex: Female

DRUGS (2)
  1. CYCLOKAPRON (IV) [Suspect]
     Indication: HAEMATEMESIS
     Route: 042
     Dates: start: 20080815, end: 20080815
  2. CYCLOKAPRON (IV) [Suspect]
     Indication: ABDOMINAL PAIN

REACTIONS (3)
  - DEATH [None]
  - DRUG ADMINISTRATION ERROR [None]
  - UNEVALUABLE EVENT [None]
